FAERS Safety Report 9691863 (Version 3)
Quarter: 2014Q2

REPORT INFORMATION
  Report Type: Report from Study
  Country: IN (occurrence: IN)
  Receive Date: 20131117
  Receipt Date: 20140501
  Transmission Date: 20141212
  Serious: Yes (Hospitalization, Other)
  Sender: FDA-Public Use
  Company Number: IN-009507513-1106USA03018

PATIENT
  Age: 46 Year
  Sex: Female
  Weight: 34 kg

DRUGS (25)
  1. EFAVIRENZ [Suspect]
     Indication: HIV INFECTION
     Dosage: 600 MG, QD
     Route: 048
     Dates: start: 20070309, end: 20111007
  2. VIDEX EC [Suspect]
     Dosage: 125MG 1 DAY
     Route: 048
  3. LAMIVUDINE (+) ZIDOVUDINE [Suspect]
     Indication: HIV INFECTION
     Dosage: 150/300 MG, BID
     Route: 048
     Dates: start: 20070309, end: 20100802
  4. ATAZANAVIR SULFATE [Suspect]
     Indication: HIV INFECTION
     Dosage: 150 MG, QD
     Route: 048
     Dates: start: 20080922, end: 20110720
  5. TENOFOVIR DISOPROXIL FUMARATE [Suspect]
     Indication: HIV INFECTION
     Dosage: 300 MG, QD
     Route: 048
     Dates: start: 20080922, end: 20100802
  6. TENOFOVIR DISOPROXIL FUMARATE [Suspect]
     Dosage: UNK
     Route: 048
     Dates: end: 20110719
  7. RITONAVIR [Suspect]
     Indication: HIV INFECTION
     Dosage: 100 MG, QD
     Route: 048
     Dates: start: 20080922, end: 20100325
  8. RITONAVIR [Suspect]
     Dosage: 100 MG, QD
     Route: 048
     Dates: start: 20100326, end: 20110719
  9. RITONAVIR [Suspect]
     Dosage: 100 MG, QD
     Route: 048
     Dates: start: 20111209, end: 20111227
  10. RITONAVIR [Suspect]
     Dosage: 100 MG, QD
     Route: 048
     Dates: start: 20111230, end: 20120102
  11. RITONAVIR [Suspect]
     Dosage: 100 MG, QD
     Route: 048
     Dates: start: 20120102, end: 20120208
  12. RITONAVIR [Suspect]
     Dosage: 100 MG, QD
     Route: 048
     Dates: start: 20120208, end: 20120211
  13. RITONAVIR [Suspect]
     Dosage: 100 MG, QD
     Route: 048
     Dates: start: 20120211, end: 20120224
  14. TRUVADA [Suspect]
     Indication: HIV INFECTION
     Dosage: 1 DF, QD
     Route: 048
     Dates: start: 20100812, end: 20111230
  15. LAMIVUDINE [Suspect]
     Indication: HIV INFECTION
     Dosage: 300 MG, QOD
     Route: 048
     Dates: start: 20120211, end: 20120223
  16. AZITHROMYCIN [Suspect]
     Indication: OPPORTUNISTIC INFECTION PROPHYLAXIS
     Dosage: 1 G, QW
     Route: 048
     Dates: start: 20110629, end: 20111007
  17. SULFAMETHOXAZOLE (+) TRIMETHOPRIM [Suspect]
     Indication: OPPORTUNISTIC INFECTION PROPHYLAXIS
     Dosage: 1 DF, QD
     Route: 048
     Dates: start: 20101129, end: 20111007
  18. ABACAVIR SULFATE [Suspect]
     Dosage: 300 MG 1 DAY
     Dates: end: 20120224
  19. DULOXETINE HYDROCHLORIDE [Concomitant]
  20. LAMIVUDINE [Suspect]
     Indication: HIV INFECTION
     Dosage: 300 MG, QD
     Route: 048
     Dates: start: 20120211, end: 20120224
  21. LAMIVUDINE [Suspect]
     Dosage: 300 MG, UNK
     Route: 048
     Dates: start: 20120224, end: 20120320
  22. LAMIVUDINE [Suspect]
     Dosage: 300 MG, UNK
     Route: 048
     Dates: start: 20120320
  23. CETIRIZINE HYDROCHLORIDE [Concomitant]
     Dosage: UNK
     Dates: start: 20111208, end: 20111210
  24. FERRIC AMMONIUM CITRATE [Concomitant]
  25. DEXTROSE [Concomitant]

REACTIONS (8)
  - HIV peripheral neuropathy [Unknown]
  - Extrapulmonary tuberculosis [Recovering/Resolving]
  - Anaemia [Not Recovered/Not Resolved]
  - Pulmonary tuberculosis [Recovering/Resolving]
  - Virologic failure [Unknown]
  - Lower respiratory tract infection [Recovered/Resolved]
  - Drug hypersensitivity [Recovered/Resolved]
  - Cytomegalovirus chorioretinitis [Not Recovered/Not Resolved]
